FAERS Safety Report 5911263-5 (Version None)
Quarter: 2008Q4

REPORT INFORMATION
  Report Type: 
  Country: None (occurrence: None)
  Receive Date: 20081007
  Receipt Date: 20080917
  Transmission Date: 20090506
  Serious: No
  Sender: FDA-Public Use
  Company Number: US-B.I. PHARMACEUTICALS,INC./RIDGEFIELD-2007-BP-04399BP

PATIENT
  Sex: Male
  Weight: 120 kg

DRUGS (27)
  1. MIRAPEX [Suspect]
     Indication: PARKINSON'S DISEASE
     Route: 048
     Dates: start: 19970101, end: 20021201
  2. SINEMET [Concomitant]
  3. ZOLOFT [Concomitant]
  4. NORFLEX [Concomitant]
  5. TEMAZEPAM [Concomitant]
  6. TASMAR [Concomitant]
  7. PERMAX [Concomitant]
  8. AMITRIPTYLINE HCL [Concomitant]
  9. COMTAN [Concomitant]
  10. STALEVO 100 [Concomitant]
     Indication: PARKINSON'S DISEASE
  11. AMANTADINE [Concomitant]
     Indication: PARKINSON'S DISEASE
  12. WELLBUTRIN [Concomitant]
     Indication: DEPRESSION
  13. LORAZEPAM [Concomitant]
  14. CELEBREX [Concomitant]
     Indication: ARTHRITIS
  15. BENICAR [Concomitant]
     Indication: BLOOD PRESSURE
  16. REQUIP [Concomitant]
     Indication: PARKINSON'S DISEASE
  17. ROXICET [Concomitant]
  18. PROPRANOLOL [Concomitant]
  19. VEETIDS [Concomitant]
  20. AZILECT [Concomitant]
     Indication: PARKINSON'S DISEASE
  21. CRESTOR [Concomitant]
     Indication: BLOOD CHOLESTEROL
  22. AMBIEN [Concomitant]
     Indication: INSOMNIA
  23. KETOROLAC TROMETHAMINE [Concomitant]
  24. TYLOX [Concomitant]
  25. AUGMENTIN '125' [Concomitant]
  26. MAXIDONE [Concomitant]
  27. ELAVIL [Concomitant]

REACTIONS (7)
  - ANXIETY [None]
  - COMPULSIVE SHOPPING [None]
  - DEPRESSION [None]
  - HYPERSEXUALITY [None]
  - PATHOLOGICAL GAMBLING [None]
  - STRESS [None]
  - SUICIDAL IDEATION [None]
